FAERS Safety Report 20461641 (Version 3)
Quarter: 2022Q2

REPORT INFORMATION
  Report Type: Report from Study
  Country: RU (occurrence: RU)
  Receive Date: 20220211
  Receipt Date: 20220607
  Transmission Date: 20220721
  Serious: Yes (Other)
  Sender: FDA-Public Use
  Company Number: RU-SERVIER-S21013571

PATIENT

DRUGS (41)
  1. PEGASPARGASE [Suspect]
     Active Substance: PEGASPARGASE
     Indication: B-cell type acute leukaemia
     Dosage: 1850 U (2500 U/M?), ON DAY 3
     Route: 042
     Dates: start: 20211004, end: 20211004
  2. DEXAMETHASONE [Suspect]
     Active Substance: DEXAMETHASONE
     Indication: B-cell type acute leukaemia
     Dosage: 2 MG, QD
     Route: 037
     Dates: start: 20211001, end: 20211001
  3. DEXAMETHASONE [Suspect]
     Active Substance: DEXAMETHASONE
     Dosage: 0.5 MG, QD
     Route: 048
     Dates: start: 20211001, end: 20211001
  4. DEXAMETHASONE [Suspect]
     Active Substance: DEXAMETHASONE
     Dosage: 1 MG, QD
     Route: 048
     Dates: start: 20211002, end: 20211002
  5. DEXAMETHASONE [Suspect]
     Active Substance: DEXAMETHASONE
     Dosage: 2 MG, QD
     Route: 048
     Dates: start: 20211003, end: 20211003
  6. DEXAMETHASONE [Suspect]
     Active Substance: DEXAMETHASONE
     Dosage: 3 MG, QD
     Route: 048
     Dates: start: 20211004, end: 20211004
  7. DEXAMETHASONE [Suspect]
     Active Substance: DEXAMETHASONE
     Dosage: 4.5 MG, QD
     Route: 048
     Dates: start: 20211005, end: 20211028
  8. DEXAMETHASONE [Suspect]
     Active Substance: DEXAMETHASONE
     Dosage: 2 MG, QD
     Route: 037
     Dates: start: 20211008, end: 20211008
  9. DEXAMETHASONE [Suspect]
     Active Substance: DEXAMETHASONE
     Dosage: 2 MG, QD
     Route: 037
     Dates: start: 20211015, end: 20211015
  10. DEXAMETHASONE [Suspect]
     Active Substance: DEXAMETHASONE
     Dosage: 2 MG, QD
     Route: 037
     Dates: start: 20211022, end: 20211022
  11. DEXAMETHASONE [Suspect]
     Active Substance: DEXAMETHASONE
     Dosage: 2 MG, QD
     Route: 037
     Dates: start: 20211029, end: 20211029
  12. DEXAMETHASONE [Suspect]
     Active Substance: DEXAMETHASONE
     Dosage: 2.5 MG
     Route: 048
     Dates: start: 20201029, end: 20211031
  13. DEXAMETHASONE [Suspect]
     Active Substance: DEXAMETHASONE
     Dosage: 1 MG, QD
     Route: 048
     Dates: start: 20211101, end: 20211103
  14. DEXAMETHASONE [Suspect]
     Active Substance: DEXAMETHASONE
     Dosage: 0.5 MG, QD
     Route: 048
     Dates: start: 20211104, end: 20211105
  15. DEXAMETHASONE [Suspect]
     Active Substance: DEXAMETHASONE
     Dosage: 2 MG, QD
     Route: 037
     Dates: start: 20211105, end: 20211105
  16. DEXAMETHASONE [Suspect]
     Active Substance: DEXAMETHASONE
     Dosage: UNK
  17. DAUNORUBICIN [Suspect]
     Active Substance: DAUNORUBICIN
     Indication: B-cell type acute leukaemia
     Dosage: 34 MG, QD
     Route: 051
     Dates: start: 20211008, end: 20211008
  18. DAUNORUBICIN [Suspect]
     Active Substance: DAUNORUBICIN
     Dosage: 34 MG, QD
     Route: 051
     Dates: start: 20211022, end: 20211022
  19. VINCRISTINE SULFATE [Suspect]
     Active Substance: VINCRISTINE SULFATE
     Indication: B-cell type acute leukaemia
     Dosage: 1 MG, QD
     Route: 051
     Dates: start: 20211008, end: 20211008
  20. VINCRISTINE SULFATE [Suspect]
     Active Substance: VINCRISTINE SULFATE
     Dosage: 1 MG, QD
     Route: 051
     Dates: start: 20211015, end: 20211015
  21. VINCRISTINE SULFATE [Suspect]
     Active Substance: VINCRISTINE SULFATE
     Dosage: 1 MG, QD
     Route: 051
     Dates: start: 20211022, end: 20211022
  22. VINCRISTINE SULFATE [Suspect]
     Active Substance: VINCRISTINE SULFATE
     Dosage: 1 MG, QD
     Route: 051
     Dates: start: 20211029, end: 20211029
  23. VINCRISTINE SULFATE [Suspect]
     Active Substance: VINCRISTINE SULFATE
     Dosage: 1 MG, QD
     Route: 051
     Dates: start: 20211105, end: 20211105
  24. TN UNSPECIFIED [Concomitant]
     Indication: B-cell type acute leukaemia
     Dosage: 12 MG, QD
     Route: 037
     Dates: start: 20211001, end: 20211001
  25. TN UNSPECIFIED [Concomitant]
     Dosage: 12 MG, QD
     Route: 037
     Dates: start: 20211008, end: 20211008
  26. TN UNSPECIFIED [Concomitant]
     Dosage: 12 MG, QD
     Route: 037
     Dates: start: 20211015, end: 20211015
  27. TN UNSPECIFIED [Concomitant]
     Dosage: 12 MG, QD
     Route: 037
     Dates: start: 20211022, end: 20211022
  28. TN UNSPECIFIED [Concomitant]
     Dosage: 12 MG, QD
     Route: 037
     Dates: start: 20211029, end: 20211029
  29. TN UNSPECIFIED [Concomitant]
     Dosage: 12 MG, QD
     Route: 037
     Dates: start: 20211105, end: 20211105
  30. TN UNSPECIFIED [Concomitant]
     Indication: B-cell type acute leukaemia
     Dosage: 50 MG, QD
     Route: 037
     Dates: start: 20211001, end: 20211001
  31. TN UNSPECIFIED [Concomitant]
     Dosage: 50 MG, QD
     Route: 037
     Dates: start: 20211008, end: 20211008
  32. TN UNSPECIFIED [Concomitant]
     Dosage: 50 MG, QD
     Route: 037
     Dates: start: 20211015, end: 20211015
  33. TN UNSPECIFIED [Concomitant]
     Dosage: 50 MG, QD
     Route: 037
     Dates: start: 20211022, end: 20211022
  34. TN UNSPECIFIED [Concomitant]
     Dosage: 50 MG, QD
     Route: 037
     Dates: start: 20211029, end: 20211029
  35. TN UNSPECIFIED [Concomitant]
     Dosage: 50 MG, QD
     Route: 037
     Dates: start: 20211105, end: 20211105
  36. TN UNSPECIFIED [Concomitant]
     Indication: Supportive care
     Dosage: 500 ML, QD
     Route: 051
     Dates: start: 20210922, end: 20211119
  37. TN UNSPECIFIED [Concomitant]
     Indication: Antifungal prophylaxis
     Dosage: 1440 MG, 1X/WEEK
     Route: 048
     Dates: start: 20210923
  38. TN UNSPECIFIED [Concomitant]
     Indication: Antifungal prophylaxis
     Dosage: 40 MG, QD
     Route: 051
     Dates: start: 20210925, end: 20211107
  39. TN UNSPECIFIED [Concomitant]
     Indication: Antibiotic therapy
     Dosage: 250 MG, QID
     Route: 051
     Dates: start: 20210925, end: 20211112
  40. TN UNSPECIFIED [Concomitant]
     Indication: Antibiotic therapy
     Dosage: 180 MG, TID
     Route: 051
     Dates: start: 20210925, end: 20211110
  41. TN UNSPECIFIED [Concomitant]
     Indication: Antibiotic therapy
     Dosage: 250 MG, QD
     Route: 051
     Dates: start: 20210925, end: 20211106

REACTIONS (4)
  - Lymphocyte count decreased [Recovered/Resolved]
  - Pneumonia herpes viral [Recovered/Resolved]
  - Bronchopulmonary aspergillosis [Recovered/Resolved]
  - Alanine aminotransferase increased [Recovered/Resolved]

NARRATIVE: CASE EVENT DATE: 20211011
